FAERS Safety Report 17866789 (Version 2)
Quarter: 2020Q2

REPORT INFORMATION
  Report Type: Spontaneous
  Country: CN (occurrence: CN)
  Receive Date: 20200605
  Receipt Date: 20200611
  Transmission Date: 20200714
  Serious: Yes (Other)
  Sender: FDA-Public Use
  Company Number: CN-ASTRAZENECA-2020SE72626

PATIENT
  Age: 68 Year
  Sex: Female

DRUGS (1)
  1. IRESSA [Suspect]
     Active Substance: GEFITINIB
     Indication: NON-SMALL CELL LUNG CANCER
     Route: 048
     Dates: end: 202003

REACTIONS (8)
  - Malignant neoplasm progression [Not Recovered/Not Resolved]
  - Asthma [Not Recovered/Not Resolved]
  - Generalised oedema [Not Recovered/Not Resolved]
  - Drug resistance [Not Recovered/Not Resolved]
  - Product use issue [Unknown]
  - Therapeutic product effect incomplete [Unknown]
  - Asthenia [Not Recovered/Not Resolved]
  - Decreased appetite [Not Recovered/Not Resolved]

NARRATIVE: CASE EVENT DATE: 202004
